FAERS Safety Report 17938793 (Version 2)
Quarter: 2020Q3

REPORT INFORMATION
  Report Type: Other
  Country: HR (occurrence: HR)
  Receive Date: 20200625
  Receipt Date: 20200903
  Transmission Date: 20201103
  Serious: Yes (Death, Life-Threatening, Hospitalization)
  Sender: FDA-Public Use
  Company Number: HR-ROCHE-2626242

PATIENT
  Age: 53 Year
  Sex: Male

DRUGS (7)
  1. ANTITHYMOCYTE IMMUNOGLOBULIN [Suspect]
     Active Substance: THYMOCYTE IMMUNE GLOBULIN NOS
     Indication: IMMUNOSUPPRESSANT DRUG THERAPY
     Route: 065
     Dates: start: 201111, end: 201111
  2. TACROLIMUS. [Suspect]
     Active Substance: TACROLIMUS
     Indication: IMMUNOSUPPRESSANT DRUG THERAPY
     Dosage: TITRATED TO 4 TO 8 NG/ML
     Route: 065
     Dates: start: 201111, end: 201404
  3. PREDNISONE. [Suspect]
     Active Substance: PREDNISONE
     Dosage: 5 MILLIGRAM DAILY;
     Route: 065
     Dates: start: 201111, end: 201205
  4. MYCOPHENOLIC ACID. [Suspect]
     Active Substance: MYCOPHENOLIC ACID
     Indication: IMMUNOSUPPRESSANT DRUG THERAPY
     Route: 065
     Dates: start: 201111
  5. EVEROLIMUS. [Suspect]
     Active Substance: EVEROLIMUS
     Indication: PRODUCT USED FOR UNKNOWN INDICATION
     Dosage: A SMALL DOSE
     Route: 065
  6. PREDNISONE. [Suspect]
     Active Substance: PREDNISONE
     Indication: IMMUNOSUPPRESSANT DRUG THERAPY
     Route: 065
     Dates: start: 201205, end: 201404
  7. MYCOPHENOLIC ACID. [Suspect]
     Active Substance: MYCOPHENOLIC ACID
     Route: 065
     Dates: start: 201111, end: 201404

REACTIONS (12)
  - Respiratory failure [Unknown]
  - Coma [Unknown]
  - Lymphopenia [Unknown]
  - Immune reconstitution inflammatory syndrome [Fatal]
  - Pneumonia [Unknown]
  - JC virus infection [Fatal]
  - Staphylococcal infection [Unknown]
  - Pseudomonas infection [Unknown]
  - Leukopenia [Unknown]
  - Haemoglobin decreased [Unknown]
  - Progressive multifocal leukoencephalopathy [Fatal]
  - Infection reactivation [Unknown]

NARRATIVE: CASE EVENT DATE: 2014
